FAERS Safety Report 12628470 (Version 1)
Quarter: 2016Q3

REPORT INFORMATION
  Report Type: Spontaneous
  Country: US (occurrence: US)
  Receive Date: 20160808
  Receipt Date: 20160808
  Transmission Date: 20161109
  Serious: No
  Sender: FDA-Public Use
  Company Number: US-JAZZ-2016-US-004037

PATIENT
  Sex: Female

DRUGS (44)
  1. XYREM [Suspect]
     Active Substance: SODIUM OXYBATE
     Dosage: 2.25 G, BID
     Route: 048
     Dates: start: 200606, end: 200709
  2. ATIVAN [Concomitant]
     Active Substance: LORAZEPAM
  3. TRYPTOPHAN [Concomitant]
     Active Substance: TRYPTOPHAN
  4. ASPIRIN (E.C.) [Concomitant]
     Active Substance: ASPIRIN
  5. TRYPTOPHAN [Concomitant]
     Active Substance: TRYPTOPHAN
  6. PYRIDOXINE HCL [Concomitant]
     Active Substance: PYRIDOXINE HYDROCHLORIDE
  7. PREMARIN [Concomitant]
     Active Substance: ESTROGENS, CONJUGATED
  8. PEPCID AC [Concomitant]
     Active Substance: FAMOTIDINE
  9. CIPRO [Concomitant]
     Active Substance: CIPROFLOXACIN HYDROCHLORIDE
  10. AMINOACETIC ACID [Concomitant]
     Active Substance: GLYCINE
  11. NYSTATIN. [Concomitant]
     Active Substance: NYSTATIN
  12. VISTARIL [Concomitant]
     Active Substance: HYDROXYZINE PAMOATE
  13. XYREM [Suspect]
     Active Substance: SODIUM OXYBATE
     Indication: NARCOLEPSY
     Dosage: 2.25 G, BID
     Route: 048
     Dates: start: 200510, end: 200601
  14. 5-HTP [Concomitant]
     Active Substance: OXITRIPTAN
  15. ONDANSETRON [Concomitant]
     Active Substance: ONDANSETRON
  16. PAXIL [Concomitant]
     Active Substance: PAROXETINE HYDROCHLORIDE
  17. INDERAL [Concomitant]
     Active Substance: PROPRANOLOL HYDROCHLORIDE
  18. VITAMIN B6 [Concomitant]
     Active Substance: PYRIDOXINE HYDROCHLORIDE
  19. TYLENOL WITH CODEINE [Concomitant]
     Active Substance: ACETAMINOPHEN\CODEINE PHOSPHATE
  20. TYLENOL WITH CODEINE [Concomitant]
     Active Substance: ACETAMINOPHEN\CODEINE PHOSPHATE
  21. PROTONIX [Concomitant]
     Active Substance: PANTOPRAZOLE SODIUM
  22. TRAZODONE [Concomitant]
     Active Substance: TRAZODONE HYDROCHLORIDE
  23. TRAZODONE [Concomitant]
     Active Substance: TRAZODONE HYDROCHLORIDE
  24. TYLENOL EXTRA STRENGTH [Concomitant]
     Active Substance: ACETAMINOPHEN
  25. XYREM [Suspect]
     Active Substance: SODIUM OXYBATE
     Dosage: 4.5 G, BID
     Route: 048
     Dates: start: 200709
  26. MOTRIN IB [Concomitant]
     Active Substance: IBUPROFEN
  27. VITAMIN C [Concomitant]
     Active Substance: ASCORBIC ACID
  28. GABAPENTIN. [Concomitant]
     Active Substance: GABAPENTIN
  29. TAURINE [Concomitant]
     Active Substance: TAURINE
  30. MOTRIN IB [Concomitant]
     Active Substance: IBUPROFEN
  31. PROBIOTIC [Concomitant]
     Active Substance: PROBIOTICS NOS
  32. TYLENOL WITH CODEINE [Concomitant]
     Active Substance: ACETAMINOPHEN\CODEINE PHOSPHATE
  33. OXYCODONE AND ACETAMINOPHEN [Concomitant]
     Active Substance: ACETAMINOPHEN\OXYCODONE HYDROCHLORIDE
  34. PREDNISONE. [Concomitant]
     Active Substance: PREDNISONE
  35. LOPRESSOR [Concomitant]
     Active Substance: METOPROLOL TARTRATE
  36. VISTARIL [Concomitant]
     Active Substance: HYDROXYZINE PAMOATE
  37. PROGESTERONE W/ESTROGENS [Concomitant]
  38. PAXIL [Concomitant]
     Active Substance: PAROXETINE HYDROCHLORIDE
  39. PRILOSEC [Concomitant]
     Active Substance: OMEPRAZOLE MAGNESIUM
  40. CYANOCOBALAMIN. [Concomitant]
     Active Substance: CYANOCOBALAMIN
  41. PHENOBARBITAL. [Concomitant]
     Active Substance: PHENOBARBITAL
  42. NYSTATIN. [Concomitant]
     Active Substance: NYSTATIN
  43. PROPRANOLOL [Concomitant]
     Active Substance: PROPRANOLOL\PROPRANOLOL HYDROCHLORIDE
  44. PROZAC [Concomitant]
     Active Substance: FLUOXETINE HYDROCHLORIDE

REACTIONS (1)
  - Nail operation [Recovered/Resolved]
